FAERS Safety Report 6934373-2 (Version None)
Quarter: 2010Q3

REPORT INFORMATION
  Report Type: 
  Country: None (occurrence: None)
  Receive Date: 20100820
  Receipt Date: 20100816
  Transmission Date: 20110219
  Serious: Yes (Death)
  Sender: FDA-Public Use
  Company Number: A0876675A

PATIENT
  Sex: Male
  Weight: 55 kg

DRUGS (1)
  1. SERETIDE [Suspect]
     Dosage: 1PUFF PER DAY
     Route: 055
     Dates: start: 20090801, end: 20100219

REACTIONS (1)
  - DEATH [None]
